FAERS Safety Report 6596774-4 (Version None)
Quarter: 2010Q1

REPORT INFORMATION
  Report Type: 
  Country: None (occurrence: None)
  Receive Date: 20100222
  Receipt Date: 20100222
  Transmission Date: 20100710
  Serious: Yes (Life-Threatening, Hospitalization)
  Sender: FDA-Public Use
  Company Number: None

PATIENT
  Sex: Female
  Weight: 93.441 kg

DRUGS (2)
  1. DOXYCYCLINE [Suspect]
     Indication: ACNE
     Dosage: 100 MG 2X DAY MOUTH
     Route: 048
     Dates: start: 20091022, end: 20091118
  2. DOXYCYCLINE [Suspect]
     Indication: FURUNCLE
     Dosage: 100 MG 2X DAY MOUTH
     Route: 048
     Dates: start: 20091022, end: 20091118

REACTIONS (1)
  - STEVENS-JOHNSON SYNDROME [None]
